FAERS Safety Report 9760460 (Version 1)
Quarter: 2013Q4

REPORT INFORMATION
  Report Type: Spontaneous
  Country: FR (occurrence: FR)
  Receive Date: 20131216
  Receipt Date: 20131216
  Transmission Date: 20140711
  Serious: Yes (Other)
  Sender: FDA-Public Use
  Company Number: FR-BRISTOL-MYERS SQUIBB COMPANY-19892413

PATIENT
  Age: 38 Year
  Sex: Female

DRUGS (2)
  1. ENTECAVIR [Suspect]
     Indication: HEPATITIS B
     Dates: start: 2013
  2. VIREAD [Suspect]
     Indication: HEPATITIS B
     Dosage: TABS

REACTIONS (2)
  - Rhabdomyolysis [Unknown]
  - Pregnancy [Recovered/Resolved]
